FAERS Safety Report 16225576 (Version 1)
Quarter: 2019Q2

REPORT INFORMATION
  Report Type: Spontaneous
  Country: US (occurrence: US)
  Receive Date: 20190422
  Receipt Date: 20190422
  Transmission Date: 20190711
  Serious: No
  Sender: FDA-Public Use
  Company Number: US-ELI_LILLY_AND_COMPANY-US201904010012

PATIENT
  Sex: Female

DRUGS (6)
  1. ADMELOG SOLOSTAR [Concomitant]
     Dosage: 16 IU, EACH AFTERNOON
  2. JANUMET [Concomitant]
     Active Substance: METFORMIN HYDROCHLORIDE\SITAGLIPTIN PHOSPHATE
     Indication: TYPE 2 DIABETES MELLITUS
     Dosage: 50/1000MG, TWICE DAILY
  3. BASAGLAR [Suspect]
     Active Substance: INSULIN GLARGINE
     Indication: TYPE 2 DIABETES MELLITUS
     Dosage: 30 IU, UNKNOWN
     Route: 058
     Dates: start: 2017
  4. ADMELOG SOLOSTAR [Concomitant]
     Indication: TYPE 2 DIABETES MELLITUS
     Dosage: 14 IU, EACH MORNING
  5. ADMELOG SOLOSTAR [Concomitant]
     Dosage: 14 IU, EACH EVENING
  6. GLYBURIDE. [Concomitant]
     Active Substance: GLYBURIDE
     Indication: TYPE 2 DIABETES MELLITUS

REACTIONS (2)
  - Product dose omission [Unknown]
  - Blood glucose abnormal [Unknown]
